FAERS Safety Report 7921895 (Version 5)
Quarter: 2013Q2

REPORT INFORMATION
  Report Type: Spontaneous
  Country: US (occurrence: US)
  Receive Date: 20110429
  Receipt Date: 20130607
  Transmission Date: 20140414
  Serious: Yes (Hospitalization, Congenital Anomaly, Other)
  Sender: FDA-Public Use
  Company Number: US-PFIZER INC-2011089808

PATIENT
  Age: 10 Week
  Sex: Male
  Weight: 3.8 kg

DRUGS (16)
  1. ZOLOFT [Suspect]
     Indication: DEPRESSION
     Dosage: 150 MG, DAILY
     Route: 064
     Dates: start: 20080813, end: 20090323
  2. ZOLOFT [Suspect]
     Dosage: 50 MG, UNK
     Route: 064
     Dates: start: 20080827
  3. ZOLOFT [Suspect]
     Dosage: 100 MG, UNK
     Route: 064
     Dates: start: 20081008
  4. SERTRALINE HCL [Suspect]
     Indication: DEPRESSION
     Dosage: 50 MG TABLET, HALF TABLET EVERY MORNING
     Route: 064
     Dates: start: 20080812
  5. SERTRALINE HCL [Suspect]
     Dosage: 100 MG, DAILY
     Route: 064
     Dates: start: 20080827
  6. SERTRALINE HCL [Suspect]
     Dosage: 100MG TABLET, HALF TABLET EVERY MORNING
     Route: 064
     Dates: start: 20081008
  7. SERTRALINE HCL [Suspect]
     Dosage: 100 MG, UNK
     Route: 064
     Dates: start: 20081028
  8. SERTRALINE HCL [Suspect]
     Dosage: 100MG TABLET, ONE AND HALF TABLET ONCE DAILY EVERY MORNING
     Route: 064
     Dates: start: 20081106
  9. SERTRALINE HCL [Suspect]
     Dosage: 100 MG, DAILY
     Route: 064
     Dates: start: 20090322
  10. PRENATAL VITAMINS [Concomitant]
     Route: 064
  11. CYMBALTA [Concomitant]
     Indication: DEPRESSION
     Dosage: 60 MG, UNK
     Route: 064
     Dates: start: 20080710, end: 20080813
  12. WELLBUTRIN [Concomitant]
     Indication: DEPRESSION
     Dosage: 300 MG, UNK
     Route: 064
     Dates: start: 20080710
  13. WELLBUTRIN [Concomitant]
     Dosage: 150 MG, FOR 7 DAYS AND THEN DISCONTINUED
     Route: 064
     Dates: start: 20080723, end: 20080813
  14. ALPRAZOLAM [Concomitant]
     Indication: ANXIETY
     Dosage: UNK
     Route: 064
     Dates: start: 20080710
  15. VALTREX [Concomitant]
     Route: 064
  16. EUGYNON [Concomitant]
     Route: 064

REACTIONS (10)
  - Foetal exposure during pregnancy [Unknown]
  - Craniosynostosis [Not Recovered/Not Resolved]
  - Conjunctivitis [Recovered/Resolved]
  - Cephalhaematoma [Recovering/Resolving]
  - Plagiocephaly [Recovering/Resolving]
  - Scaphocephaly [Recovering/Resolving]
  - Otitis media [Unknown]
  - Pneumonia [Unknown]
  - Lower respiratory tract infection [Unknown]
  - Upper respiratory tract infection [Unknown]
